FAERS Safety Report 5885093-7 (Version None)
Quarter: 2008Q3

REPORT INFORMATION
  Report Type: 
  Country: None (occurrence: None)
  Receive Date: 20080916
  Receipt Date: 20080902
  Transmission Date: 20090109
  Serious: Yes (Hospitalization)
  Sender: FDA-Public Use
  Company Number: PHHO1996CA02968

PATIENT
  Sex: Male
  Weight: 98 kg

DRUGS (2)
  1. SANDIMMUNE [Suspect]
     Route: 048
     Dates: start: 19960919
  2. ORTHOCLONE OKT3 [Suspect]
     Dosage: UNSPECIFIED
     Route: 042
     Dates: start: 19961025, end: 19961025

REACTIONS (2)
  - BRONCHOSPASM [None]
  - TRANSPLANT REJECTION [None]
